FAERS Safety Report 8436316-1 (Version None)
Quarter: 2012Q2

REPORT INFORMATION
  Report Type: 
  Country: None (occurrence: None)
  Receive Date: 20120614
  Receipt Date: 20120601
  Transmission Date: 20120825
  Serious: No
  Sender: FDA-Public Use
  Company Number: JP-ELI_LILLY_AND_COMPANY-JP201205005820

PATIENT
  Age: 39 Year
  Sex: Male

DRUGS (4)
  1. LENDORMIN [Concomitant]
     Dosage: UNK
  2. CYMBALTA [Suspect]
     Indication: DEPRESSION
     Dosage: 60 MG, QD
     Route: 048
     Dates: start: 20120325, end: 20120508
  3. AMOXAPINE [Concomitant]
     Dosage: UNK
  4. GASMOTIN [Concomitant]
     Dosage: UNK

REACTIONS (1)
  - LIVER DISORDER [None]
